FAERS Safety Report 16144147 (Version 1)
Quarter: 2019Q2

REPORT INFORMATION
  Report Type: Spontaneous
  Country: US (occurrence: US)
  Receive Date: 20190401
  Receipt Date: 20190401
  Transmission Date: 20190711
  Serious: Yes (Other)
  Sender: FDA-Public Use
  Company Number: US-ANIPHARMA-2019-US-004176

PATIENT
  Age: 38 Year
  Sex: Female
  Weight: 88 kg

DRUGS (1)
  1. ARIMIDEX [Suspect]
     Active Substance: ANASTROZOLE
     Indication: PRODUCT USED FOR UNKNOWN INDICATION
     Dosage: 1 MG DAILY
     Route: 048
     Dates: start: 20190201, end: 20190314

REACTIONS (4)
  - Arthralgia [Recovering/Resolving]
  - Suicidal ideation [Recovered/Resolved]
  - Depression [Recovered/Resolved]
  - Bone pain [Recovering/Resolving]
